FAERS Safety Report 9014522 (Version 2)
Quarter: 2013Q1

REPORT INFORMATION
  Report Type: Spontaneous
  Country: US (occurrence: US)
  Receive Date: 20130115
  Receipt Date: 20130326
  Transmission Date: 20140127
  Serious: Yes (Hospitalization)
  Sender: FDA-Public Use
  Company Number: US-JNJFOC-20130102926

PATIENT
  Age: 52 None
  Sex: Male

DRUGS (2)
  1. REMICADE [Suspect]
     Indication: COLITIS ULCERATIVE
     Route: 042
     Dates: start: 20080820, end: 20121102
  2. LOTREL [Concomitant]
     Indication: BLOOD PRESSURE INCREASED
     Route: 065

REACTIONS (4)
  - Pneumothorax [Recovering/Resolving]
  - Immunosuppression [Unknown]
  - Lung disorder [Unknown]
  - Aspergilloma [Recovering/Resolving]
